FAERS Safety Report 20051706 (Version 1)
Quarter: 2021Q4

REPORT INFORMATION
  Report Type: Spontaneous
  Country: US (occurrence: US)
  Receive Date: 20211110
  Receipt Date: 20211110
  Transmission Date: 20220303
  Serious: Yes (Hospitalization)
  Sender: FDA-Public Use
  Company Number: US-HETERO-HET2021US02091

PATIENT
  Age: 69 Year
  Sex: Male

DRUGS (1)
  1. LINEZOLID [Suspect]
     Active Substance: LINEZOLID
     Indication: Product used for unknown indication
     Dosage: UNK (30 DAYS SUPPLY WITH 3 REFILLS)
     Route: 048

REACTIONS (2)
  - Toxicity to various agents [Recovered/Resolved]
  - Medication error [Unknown]
